FAERS Safety Report 6290557-0 (Version None)
Quarter: 2009Q3

REPORT INFORMATION
  Report Type: 
  Country: None (occurrence: None)
  Receive Date: 20090730
  Receipt Date: 20090720
  Transmission Date: 20100115
  Serious: Yes (Hospitalization)
  Sender: FDA-Public Use
  Company Number: MX-ROCHE-643427

PATIENT
  Sex: Male
  Weight: 136 kg

DRUGS (3)
  1. RIBAVIRIN [Suspect]
     Indication: HEPATITIS C
     Route: 048
     Dates: start: 20070716, end: 20070827
  2. RIBAVIRIN [Suspect]
     Route: 048
     Dates: start: 20071203
  3. PEG-INTERFERON ALFA 2A (RO 25-8310) [Suspect]
     Indication: HEPATITIS C
     Route: 058
     Dates: start: 20070716

REACTIONS (3)
  - HYPOTENSION [None]
  - MIGRAINE [None]
  - PARAESTHESIA [None]
